FAERS Safety Report 19455924 (Version 1)
Quarter: 2021Q2

REPORT INFORMATION
  Report Type: Spontaneous
  Country: US (occurrence: US)
  Receive Date: 20210624
  Receipt Date: 20210624
  Transmission Date: 20210721
  Serious: No
  Sender: FDA-Public Use
  Company Number: None

PATIENT
  Age: 73 Year
  Sex: Male

DRUGS (1)
  1. LEVOFLOXACIN (LEVOFLOXACIN 500MG TAB) [Suspect]
     Active Substance: LEVOFLOXACIN
     Route: 048
     Dates: start: 20210324, end: 20210402

REACTIONS (1)
  - Prostatitis [None]

NARRATIVE: CASE EVENT DATE: 20210402
